FAERS Safety Report 12350835 (Version 1)
Quarter: 2016Q2

REPORT INFORMATION
  Report Type: Spontaneous
  Country: FR (occurrence: FR)
  Receive Date: 20160510
  Receipt Date: 20160510
  Transmission Date: 20160815
  Serious: Yes (Life-Threatening, Hospitalization)
  Sender: FDA-Public Use
  Company Number: FR-NOVOPROD-490533

PATIENT
  Age: 32 Year
  Sex: Female

DRUGS (12)
  1. NORSET [Concomitant]
     Active Substance: MIRTAZAPINE
  2. NOVORAPID [Suspect]
     Active Substance: INSULIN ASPART
     Indication: PRODUCT USED FOR UNKNOWN INDICATION
     Dosage: 5 DF
     Route: 058
     Dates: start: 20160327, end: 20160327
  3. XANAX [Concomitant]
     Active Substance: ALPRAZOLAM
  4. ACUPAN [Suspect]
     Active Substance: NEFOPAM HYDROCHLORIDE
     Indication: PRODUCT USED FOR UNKNOWN INDICATION
     Dosage: 5 AMPOULES
     Route: 065
  5. NOCTAMIDE [Concomitant]
     Active Substance: LORMETAZEPAM
  6. LYRICA [Concomitant]
     Active Substance: PREGABALIN
  7. ZITHROMAX [Concomitant]
     Active Substance: AZITHROMYCIN DIHYDRATE
  8. INEXIUM                            /01479302/ [Concomitant]
     Active Substance: ESOMEPRAZOLE MAGNESIUM
  9. LEVOTHYROX [Concomitant]
     Active Substance: LEVOTHYROXINE
  10. VENLAFAXINE [Concomitant]
     Active Substance: VENLAFAXINE HYDROCHLORIDE
  11. CREON [Concomitant]
     Active Substance: PANCRELIPASE AMYLASE\PANCRELIPASE LIPASE\PANCRELIPASE PROTEASE
  12. XEROQUEL [Concomitant]
     Active Substance: QUETIAPINE FUMARATE

REACTIONS (3)
  - Hypokalaemia [Recovered/Resolved]
  - Sinus tachycardia [Recovered/Resolved]
  - Hypoglycaemia [Recovered/Resolved]

NARRATIVE: CASE EVENT DATE: 20160327
